FAERS Safety Report 6068246-7 (Version None)
Quarter: 2009Q1

REPORT INFORMATION
  Report Type: 
  Country: None (occurrence: None)
  Receive Date: 20090206
  Receipt Date: 20090126
  Transmission Date: 20090719
  Serious: Yes (Hospitalization, Other)
  Sender: FDA-Public Use
  Company Number: PHHY2009ES02588

PATIENT
  Age: 87 Year
  Sex: Male
  Weight: 80 kg

DRUGS (7)
  1. TRILEPTAL [Suspect]
     Indication: EPILEPSY
     Dosage: 300 MG/DAY
     Dates: start: 20081123
  2. TRIALMIN [Suspect]
     Indication: HYPERTRIGLYCERIDAEMIA
     Dosage: 900 MG/DAY
     Dates: start: 20081001, end: 20081203
  3. SINTROM [Concomitant]
  4. DIGOXIN [Concomitant]
     Route: 048
  5. METFORMIN HCL [Concomitant]
     Route: 048
  6. ACFOL [Concomitant]
     Dosage: 5 MG/DAY
     Route: 048
  7. LOSARTAN POTASSIUM AND HYDROCHLOROTHIAZIDE [Concomitant]

REACTIONS (2)
  - BLOOD CREATINE PHOSPHOKINASE INCREASED [None]
  - RHABDOMYOLYSIS [None]
